FAERS Safety Report 15478379 (Version 6)
Quarter: 2019Q2

REPORT INFORMATION
  Report Type: Spontaneous
  Country: US (occurrence: US)
  Receive Date: 20181009
  Receipt Date: 20190429
  Transmission Date: 20190711
  Serious: No
  Sender: FDA-Public Use
  Company Number: US-SA-2018SA276990

PATIENT
  Age: 58 Year
  Sex: Male

DRUGS (1)
  1. DUPILUMAB [Suspect]
     Active Substance: DUPILUMAB
     Indication: DERMATITIS ATOPIC
     Dosage: 300 MG, QOW
     Route: 058
     Dates: start: 20180906

REACTIONS (7)
  - Condition aggravated [Not Recovered/Not Resolved]
  - Lymph node pain [Unknown]
  - Arthralgia [Recovered/Resolved]
  - Lymphadenopathy [Unknown]
  - Dermatitis [Not Recovered/Not Resolved]
  - Night sweats [Not Recovered/Not Resolved]
  - Rash [Not Recovered/Not Resolved]

NARRATIVE: CASE EVENT DATE: 201809
